FAERS Safety Report 10286571 (Version 2)
Quarter: 2014Q3

REPORT INFORMATION
  Report Type: Report from Study
  Country: US (occurrence: US)
  Receive Date: 20140709
  Receipt Date: 20140901
  Transmission Date: 20150326
  Serious: Yes (Other)
  Sender: FDA-Public Use
  Company Number: PHEH2014US013611

PATIENT
  Sex: Female
  Weight: 107.5 kg

DRUGS (12)
  1. ULTRAM [Concomitant]
     Active Substance: TRAMADOL HYDROCHLORIDE
     Dosage: 50 MG, QD
     Route: 048
  2. CLOBETASOL [Concomitant]
     Active Substance: CLOBETASOL
     Dosage: TWICE DAILY
     Route: 061
  3. DIFLUCAN [Concomitant]
     Active Substance: FLUCONAZOLE
     Dosage: 150 MG, QW
     Route: 048
  4. PLEXION [Concomitant]
     Active Substance: SULFACETAMIDE SODIUM\SULFUR
     Dosage: 10%-5% TOPICAL LIQUID
     Route: 061
  5. NOVOLOG [Concomitant]
     Active Substance: INSULIN ASPART
     Route: 058
  6. GILENYA [Suspect]
     Active Substance: FINGOLIMOD HYDROCHLORIDE
     Indication: MULTIPLE SCLEROSIS
     Dosage: 0.5 MG, QD
     Route: 048
     Dates: start: 20120411, end: 20140815
  7. MOTRIN [Concomitant]
     Active Substance: IBUPROFEN
     Dosage: 800 MG, Q8H
     Route: 048
  8. FLEXERIL [Concomitant]
     Active Substance: CYCLOBENZAPRINE HYDROCHLORIDE
     Dosage: AS NEEDED
  9. XANAX [Concomitant]
     Active Substance: ALPRAZOLAM
     Route: 048
  10. MINOCYCLINE [Concomitant]
     Active Substance: MINOCYCLINE\MINOCYCLINE HYDROCHLORIDE
     Dosage: 100 MG, QD
     Route: 048
  11. SOLU-MEDROL [Concomitant]
     Active Substance: METHYLPREDNISOLONE SODIUM SUCCINATE
     Route: 042
  12. BACLOFEN. [Concomitant]
     Active Substance: BACLOFEN
     Dosage: 10 MG, PRN
     Route: 048

REACTIONS (9)
  - Gingival pain [Unknown]
  - Body mass index increased [Unknown]
  - Tooth abscess [Unknown]
  - Eye disorder [Unknown]
  - Alopecia [Unknown]
  - Scratch [Recovered/Resolved]
  - Blood pressure decreased [Unknown]
  - Infection [Recovered/Resolved]
  - Fall [Recovered/Resolved]
